FAERS Safety Report 15229415 (Version 1)
Quarter: 2018Q3

REPORT INFORMATION
  Report Type: Spontaneous
  Country: IL (occurrence: IL)
  Receive Date: 20180801
  Receipt Date: 20180801
  Transmission Date: 20181010
  Serious: Yes (Other)
  Sender: FDA-Public Use
  Company Number: IL-BAXTER-2018BAX020581

PATIENT
  Age: 36 Year
  Sex: Female

DRUGS (23)
  1. STERILE WATER FOR INJECTION [Suspect]
     Active Substance: WATER
     Indication: PARENTERAL NUTRITION
     Dosage: 3 L, WITH ZANTAC; AS PART OF FIRST PREPARATION (IMPORTED FROM BAXTER?USA (NORTH CAROLINA / NORTH COV
     Route: 065
  2. GLUCOSE 50% W/V CONCENTRATE FOR SOLUTION FOR INFUSION [Suspect]
     Active Substance: DEXTROSE
     Dosage: WITHOUT ZANTAC; AS PART OF SECOND PREPARATION (IMPORTED FROM BAXTER? UK (THETFORD))
     Route: 065
  3. CERNEVIT [Suspect]
     Active Substance: VITAMINS
     Dosage: 5 ML; WITHOUT ZANTAC; AS PART OF SECOND PREPARATION (IMPORTED FROM BAXTER? BELGIUM (LESSINES))
     Route: 065
  4. ZANTAC [Suspect]
     Active Substance: RANITIDINE HYDROCHLORIDE
     Indication: PARENTERAL NUTRITION
     Dosage: 50 MG/ 2 ML, 2 ML AMPOULE; AS PART OF FIRST PREPARATION
     Route: 065
  5. CALCIUM GLUCONATE. [Suspect]
     Active Substance: CALCIUM GLUCONATE
     Dosage: WITHOUT ZANTAC; AS PART OF SECOND PREPARATION
     Route: 065
  6. ADDAMEL [Suspect]
     Active Substance: ELECTROLYTES NOS\MINERALS\SORBITOL
     Dosage: 10 ML; WITHOUT ZANTAC; AS PART OF SECOND PREPARATION
     Route: 065
  7. SODIUM CHLORIDE. [Suspect]
     Active Substance: SODIUM CHLORIDE
     Dosage: 100 ML 29G; WITHOUT ZANTAC; AS PART OF SECOND PREPARATION
     Route: 065
  8. SODIUM CHLORIDE. [Suspect]
     Active Substance: SODIUM CHLORIDE
     Indication: PARENTERAL NUTRITION
     Dosage: 100 ML 29G; WITH ZANTAC; AS PART OF FIRST PREPARATION
     Route: 065
  9. SYNTHAMIN [Suspect]
     Active Substance: AMINO ACIDS
     Indication: PARENTERAL NUTRITION
     Dosage: 3000ML 29G; WITH ZANTAC; AS PART OF FIRST PREPARATION (IMPORTED FROM BAXTER? UK (THETFORD))
     Route: 065
  10. CLINOLEIC  20% [Suspect]
     Active Substance: OLIVE OIL\SOYBEAN OIL
     Indication: PARENTERAL NUTRITION
     Dosage: 500 ML MONOBAG; WITH ZANTAC; AS PART OF FIRST PREPARATION (IMPORTED FROM BAXTER? BELGIUM (LESSINES))
     Route: 065
  11. MAGNESIUM SULFATE. [Suspect]
     Active Substance: MAGNESIUM SULFATE
     Indication: PARENTERAL NUTRITION
     Dosage: WITH ZANTAC; AS PART OF FIRST PREPARATION
     Route: 065
  12. SYNTHAMIN [Suspect]
     Active Substance: AMINO ACIDS
     Dosage: 3000ML 29G, WITHOUT ZANTAC; AS PART OF SECOND PREPARATION (IMPORTED FROM BAXTER? UK (THETFORD))
     Route: 065
  13. CERNEVIT [Suspect]
     Active Substance: VITAMINS
     Indication: PARENTERAL NUTRITION
     Dosage: 5 ML; WITH ZANTAC; AS PART OF FIRST PREPARATION (IMPORTED FROM BAXTER? BELGIUM (LESSINES))
     Route: 065
  14. POTASSIUM CHLORIDE. [Suspect]
     Active Substance: POTASSIUM CHLORIDE
     Dosage: 500 ML 29G; WITHOUT ZANTAC; AS PART OF SECOND PREPARATION
     Route: 065
  15. STERILE WATER FOR INJECTION [Suspect]
     Active Substance: WATER
     Dosage: 3L WITH OUT ZANTAC; AS PART OF SECOND PREPARATION (IMPORTED FROM BAXTER?USA (NORTH CAROLINA / NORTH
     Route: 065
  16. SODIUM GLYCEROPHOSPHATE [Suspect]
     Active Substance: SODIUM GLYCEROPHOSPHATE
     Indication: PARENTERAL NUTRITION
     Dosage: 500 ML; WITH ZANTAC; AS PART OF FIRST PREPARATION
     Route: 065
  17. CLINOLEIC  20% [Suspect]
     Active Substance: OLIVE OIL\SOYBEAN OIL
     Dosage: 500 ML MONOBAG; WITHOUT ZANTAC; AS PART OF SECOND PREPARATION (IMPORTED FROM BAXTER? BELGIUM (LESSIN
     Route: 065
  18. SODIUM GLYCEROPHOSPHATE [Suspect]
     Active Substance: SODIUM GLYCEROPHOSPHATE
     Dosage: 500 ML; WITHOUT ZANTAC; AS PART OF SECOND PREPARATION
     Route: 065
  19. MAGNESIUM SULFATE. [Suspect]
     Active Substance: MAGNESIUM SULFATE
     Dosage: WITHOUT ZANTAC; AS PART OF SECOND PREPARATION
     Route: 065
  20. POTASSIUM CHLORIDE. [Suspect]
     Active Substance: POTASSIUM CHLORIDE
     Indication: PARENTERAL NUTRITION
     Dosage: 500 ML 29G; WITH ZANTAC AS PART OF FIRST PREPARATION
     Route: 065
  21. GLUCOSE 50% W/V CONCENTRATE FOR SOLUTION FOR INFUSION [Suspect]
     Active Substance: DEXTROSE
     Indication: PARENTERAL NUTRITION
     Dosage: WITH ZANTAC; AS PART OF FIRST PREPARATION (IMPORTED FROM BAXTER? UK (THETFORD))
     Route: 065
  22. CALCIUM GLUCONATE. [Suspect]
     Active Substance: CALCIUM GLUCONATE
     Indication: PARENTERAL NUTRITION
     Dosage: WITH ZANTAC; AS PART OF FIRST PREPARATION
     Route: 065
  23. ADDAMEL [Suspect]
     Active Substance: ELECTROLYTES NOS\MINERALS\SORBITOL
     Indication: PARENTERAL NUTRITION
     Dosage: 10 ML; WITH ZANTAC; AS PART OF FIRST PREPARATION
     Route: 065

REACTIONS (3)
  - Syncope [Recovered/Resolved]
  - Asthenia [Not Recovered/Not Resolved]
  - Feeling abnormal [Recovering/Resolving]

NARRATIVE: CASE EVENT DATE: 201807
